FAERS Safety Report 4897577-9 (Version None)
Quarter: 2006Q1

REPORT INFORMATION
  Report Type: 
  Country: None (occurrence: None)
  Receive Date: 20060130
  Receipt Date: 20060130
  Transmission Date: 20060701
  Serious: No
  Sender: FDA-Public Use
  Company Number: None

PATIENT
  Age: 83 Year
  Sex: Male
  Weight: 48 kg

DRUGS (1)
  1. CIPROFLOXACIN [Suspect]
     Indication: FEBRILE NEUTROPENIA
     Dosage: 500MG PO Q12H   8 DOSES
     Route: 048

REACTIONS (3)
  - RASH ERYTHEMATOUS [None]
  - RASH MACULAR [None]
  - RASH PRURITIC [None]
